FAERS Safety Report 4967017-X (Version None)
Quarter: 2006Q1

REPORT INFORMATION
  Report Type: 
  Country: None (occurrence: None)
  Receive Date: 20060201
  Receipt Date: 20051205
  Transmission Date: 20060701
  Serious: No
  Sender: FDA-Public Use
  Company Number: 2005PV005453

PATIENT
  Age: 65 Year
  Sex: Male
  Weight: 112.4921 kg

DRUGS (4)
  1. BYETTA [Suspect]
     Indication: DIABETES MELLITUS NON-INSULIN-DEPENDENT
     Dosage: 5 MCG, BID, SC
     Route: 058
     Dates: start: 20051130
  2. HUMULIN N [Concomitant]
  3. HUMULIN 70/30 [Concomitant]
  4. AMARYL [Concomitant]

REACTIONS (3)
  - CHILLS [None]
  - DRUG INEFFECTIVE [None]
  - NAUSEA [None]
